FAERS Safety Report 4569844-X (Version None)
Quarter: 2005Q1

REPORT INFORMATION
  Report Type: 
  Country: None (occurrence: None)
  Receive Date: 20050203
  Receipt Date: 20050127
  Transmission Date: 20050727
  Serious: Yes (Hospitalization)
  Sender: FDA-Public Use
  Company Number: ES-MERCK-0502ESP00002

PATIENT
  Age: 52 Year
  Sex: Male

DRUGS (3)
  1. VIOXX [Suspect]
     Indication: OSTEOARTHRITIS
     Route: 048
     Dates: start: 20020101, end: 20020101
  2. NONSTEROIDAL ANTI-INFLAMMATORY DRUG (UNSPECIFIED) [Concomitant]
     Indication: OSTEOARTHRITIS
     Route: 065
  3. [THERAPY UNSPECIFIED] [Concomitant]
     Indication: OSTEOARTHRITIS
     Route: 065

REACTIONS (4)
  - CAROTID ARTERY DISSECTION [None]
  - HYPERSENSITIVITY [None]
  - PHLEBITIS [None]
  - SUBARACHNOID HAEMORRHAGE [None]
